FAERS Safety Report 22051373 (Version 2)
Quarter: 2023Q4

REPORT INFORMATION
  Report Type: Report from Study
  Country: US (occurrence: US)
  Receive Date: 20230301
  Receipt Date: 20231031
  Transmission Date: 20240110
  Serious: Yes (Hospitalization, Other)
  Sender: FDA-Public Use
  Company Number: US-ABBVIE-4316245

PATIENT
  Age: 63 Year
  Sex: Female

DRUGS (2)
  1. HUMIRA [Suspect]
     Active Substance: ADALIMUMAB
     Indication: Rheumatoid arthritis
     Dosage: FORM STRENGTH: 40 MG?CITRATE FREE
     Route: 058
     Dates: start: 20230702
  2. HUMIRA [Suspect]
     Active Substance: ADALIMUMAB
     Dosage: FORM STRENGTH: 40 MG?CITRATE FREE
     Route: 058
     Dates: start: 20221221, end: 20230116

REACTIONS (6)
  - Brain operation [Recovering/Resolving]
  - Procedural headache [Recovering/Resolving]
  - Asthenia [Recovering/Resolving]
  - Pyrexia [Unknown]
  - Musculoskeletal stiffness [Unknown]
  - Cerebrospinal fluid leakage [Unknown]

NARRATIVE: CASE EVENT DATE: 20230101
